FAERS Safety Report 12766937 (Version 3)
Quarter: 2016Q4

REPORT INFORMATION
  Report Type: Report from Study
  Country: BE (occurrence: BE)
  Receive Date: 20160921
  Receipt Date: 20161115
  Transmission Date: 20170207
  Serious: Yes (Other)
  Sender: FDA-Public Use
  Company Number: BE-OTSUKA-2016_017004

PATIENT
  Age: 64 Year
  Sex: Female
  Weight: 75.5 kg

DRUGS (27)
  1. BLINDED *PLACEBO [Suspect]
     Active Substance: INVESTIGATIONAL PRODUCT
     Dosage: 15 MG, QD (IN EVENING)
     Route: 048
     Dates: start: 20150729, end: 20150731
  2. BLINDED *PLACEBO [Suspect]
     Active Substance: INVESTIGATIONAL PRODUCT
     Dosage: 15 MG, QD (IN EVENING)
     Route: 048
     Dates: start: 20150801, end: 20150804
  3. BLINDED *PLACEBO [Suspect]
     Active Substance: INVESTIGATIONAL PRODUCT
     Dosage: 60 MG, QD (IN MORNING)
     Route: 048
     Dates: start: 20150805, end: 20150807
  4. BLINDED TOLVAPTAN [Suspect]
     Active Substance: TOLVAPTAN
     Dosage: 60 MG, QD (IN MORNING)
     Route: 048
     Dates: start: 20150805, end: 20150807
  5. BLINDED *PLACEBO [Suspect]
     Active Substance: INVESTIGATIONAL PRODUCT
     Indication: CONGENITAL CYSTIC KIDNEY DISEASE
     Dosage: 90 MG, QD (IN MORNING)
     Route: 048
     Dates: start: 20150808, end: 20160730
  6. BLINDED TOLVAPTAN [Suspect]
     Active Substance: TOLVAPTAN
     Indication: CONGENITAL CYSTIC KIDNEY DISEASE
     Dosage: 90 MG, QD (IN MORNING)
     Route: 048
     Dates: start: 20150808, end: 20160730
  7. BLINDED TOLVAPTAN [Suspect]
     Active Substance: TOLVAPTAN
     Dosage: 30 MG, QD (IN MORNING)
     Route: 048
     Dates: start: 20150729, end: 20150731
  8. BISOPROLOL [Concomitant]
     Active Substance: BISOPROLOL
     Indication: HYPERTENSION
     Dosage: 10 MG, QD
     Route: 048
     Dates: start: 20160406
  9. BLINDED *PLACEBO [Suspect]
     Active Substance: INVESTIGATIONAL PRODUCT
     Dosage: PLACEBO, QD (IN MORNING)
     Route: 048
     Dates: start: 20150723, end: 20150728
  10. BLINDED *PLACEBO [Suspect]
     Active Substance: INVESTIGATIONAL PRODUCT
     Dosage: PLACEBO, QD (IN EVENING)
     Route: 048
     Dates: start: 20150723, end: 20150728
  11. BLINDED *PLACEBO [Suspect]
     Active Substance: INVESTIGATIONAL PRODUCT
     Dosage: 30 MG, QD (IN EVENING)
     Route: 048
     Dates: start: 20150805, end: 20150807
  12. BLINDED TOLVAPTAN [Suspect]
     Active Substance: TOLVAPTAN
     Dosage: 30 MG, QD (IN EVENING)
     Route: 048
     Dates: start: 20150805, end: 20150807
  13. BLINDED *PLACEBO [Suspect]
     Active Substance: INVESTIGATIONAL PRODUCT
     Dosage: 30 MG, BID (IN EVENING)
     Route: 048
     Dates: start: 20150729, end: 20160630
  14. BLINDED TOLVAPTAN [Suspect]
     Active Substance: TOLVAPTAN
     Dosage: 30 MG, BID (IN EVENING)
     Route: 048
     Dates: start: 20150729, end: 20160630
  15. BLINDED TOLVAPTAN [Suspect]
     Active Substance: TOLVAPTAN
     Dosage: 15 MG, QD (IN EVENING)
     Route: 048
     Dates: start: 20150729, end: 20150731
  16. BLINDED TOLVAPTAN [Suspect]
     Active Substance: TOLVAPTAN
     Dosage: 45 MG, QD (IN MORNING)
     Route: 048
     Dates: start: 20150801, end: 20150804
  17. BLINDED TOLVAPTAN [Suspect]
     Active Substance: TOLVAPTAN
     Dosage: 15 MG, QD (IN EVENING)
     Route: 048
     Dates: start: 20150801, end: 20150804
  18. BLINDED *PLACEBO [Suspect]
     Active Substance: INVESTIGATIONAL PRODUCT
     Dosage: 90 MG, BID (IN MORNING)
     Route: 048
     Dates: start: 20150729, end: 20160630
  19. BLINDED TOLVAPTAN [Suspect]
     Active Substance: TOLVAPTAN
     Dosage: 90 MG, BID (IN MORNING)
     Route: 048
     Dates: start: 20150729, end: 20160630
  20. BLINDED *PLACEBO [Suspect]
     Active Substance: INVESTIGATIONAL PRODUCT
     Dosage: 30 MG, QD (IN EVENING)
     Route: 048
     Dates: start: 20150808, end: 20160730
  21. BLINDED TOLVAPTAN [Suspect]
     Active Substance: TOLVAPTAN
     Dosage: PLACEBO, QD (IN EVENING)
     Route: 048
     Dates: start: 20150723, end: 20150728
  22. BLINDED *PLACEBO [Suspect]
     Active Substance: INVESTIGATIONAL PRODUCT
     Dosage: 30 MG, QD (IN MORNING)
     Route: 048
     Dates: start: 20150729, end: 20150731
  23. BLINDED *PLACEBO [Suspect]
     Active Substance: INVESTIGATIONAL PRODUCT
     Dosage: 45 MG, QD (IN MORNING)
     Route: 048
     Dates: start: 20150801, end: 20150804
  24. LISINOPRIL. [Concomitant]
     Active Substance: LISINOPRIL
     Indication: HYPERTENSION
     Dosage: 20 MG, QD
     Route: 048
     Dates: start: 1975
  25. BLINDED TOLVAPTAN [Suspect]
     Active Substance: TOLVAPTAN
     Dosage: 30 MG, QD (IN EVENING)
     Route: 048
     Dates: start: 20150808, end: 20160730
  26. BLINDED TOLVAPTAN [Suspect]
     Active Substance: TOLVAPTAN
     Dosage: PLACEBO, QD (IN MORNING)
     Route: 048
     Dates: start: 20150723, end: 20150728
  27. ALLOPURINOL. [Concomitant]
     Active Substance: ALLOPURINOL
     Indication: HYPERURICAEMIA
     Dosage: 100 MG, QD
     Route: 048
     Dates: start: 2013

REACTIONS (1)
  - Liver function test abnormal [Not Recovered/Not Resolved]

NARRATIVE: CASE EVENT DATE: 20160630
